FAERS Safety Report 11364334 (Version 1)
Quarter: 2015Q3

REPORT INFORMATION
  Report Type: Spontaneous
  Country: US (occurrence: US)
  Receive Date: 20150811
  Receipt Date: 20150811
  Transmission Date: 20151125
  Serious: No
  Sender: FDA-Public Use
  Company Number: US-009507513-1507USA014343

PATIENT
  Sex: Male

DRUGS (7)
  1. PRILOSEC [Concomitant]
     Active Substance: OMEPRAZOLE MAGNESIUM
     Dosage: 20 MG, 1 IN 1 DAY
     Route: 048
  2. VICTRELIS [Suspect]
     Active Substance: BOCEPREVIR
     Indication: CHRONIC HEPATITIS C
     Dosage: 200 MG, 3 IN 1 D
     Route: 048
  3. PROVENTIL [Concomitant]
     Active Substance: ALBUTEROL
     Dosage: UNK
  4. VICTRELIS [Suspect]
     Active Substance: BOCEPREVIR
     Dosage: 800 MG, TWICE A DAY
     Route: 048
  5. COPEGUS [Suspect]
     Active Substance: RIBAVIRIN
     Dosage: 2 CAPSULE (400MG) AT NIGHT, ALSO REPORTED AT EVENING
     Route: 048
  6. PEGASYS [Suspect]
     Active Substance: PEGINTERFERON ALFA-2A
     Indication: CHRONIC HEPATITIS C
     Dosage: 180 MICROGRAM, ONCE IN A WEEK
     Route: 058
  7. COPEGUS [Suspect]
     Active Substance: RIBAVIRIN
     Indication: CHRONIC HEPATITIS C
     Dosage: 3 CAPSULE(600MG) IN THE MORNING
     Route: 048

REACTIONS (8)
  - Inappropriate schedule of drug administration [Unknown]
  - Hepatitis C RNA increased [Unknown]
  - Palmar erythema [Unknown]
  - Cough [Unknown]
  - Dyspnoea [Unknown]
  - Flatulence [Unknown]
  - Gastrooesophageal reflux disease [Unknown]
  - Diarrhoea [Unknown]
